FAERS Safety Report 24412517 (Version 1)
Quarter: 2024Q4

REPORT INFORMATION
  Report Type: Spontaneous
  Country: US (occurrence: None)
  Receive Date: 20241007
  Receipt Date: 20241007
  Transmission Date: 20250115
  Serious: Yes (Disabling, Other)
  Sender: Public
  Company Number: None

PATIENT
  Age: 64 Year
  Sex: Female
  Weight: 67.13 kg

DRUGS (2)
  1. PROPARACAINE [Suspect]
     Active Substance: PROPARACAINE
     Indication: Anaesthesia eye
     Dates: start: 20090921
  2. TROPICAMIDE [Suspect]
     Active Substance: TROPICAMIDE
     Indication: Pupil dilation procedure

REACTIONS (9)
  - Vision blurred [None]
  - Eye haemorrhage [None]
  - Swelling of eyelid [None]
  - Eye discharge [None]
  - Vision blurred [None]
  - Eye pain [None]
  - Ocular discomfort [None]
  - Headache [None]
  - Visual impairment [None]

NARRATIVE: CASE EVENT DATE: 20090921
